FAERS Safety Report 24188194 (Version 1)
Quarter: 2024Q3

REPORT INFORMATION
  Report Type: Spontaneous
  Country: SE (occurrence: SE)
  Receive Date: 20240808
  Receipt Date: 20240808
  Transmission Date: 20241017
  Serious: Yes (Other)
  Sender: ACCORD
  Company Number: None

PATIENT
  Age: 81 Year
  Sex: Female

DRUGS (15)
  1. DONEPEZIL HYDROCHLORIDE [Suspect]
     Active Substance: DONEPEZIL HYDROCHLORIDE
     Indication: Memory impairment
     Dates: start: 20230605
  2. FORMOTEROL FUMARATE [Concomitant]
     Active Substance: FORMOTEROL FUMARATE
     Dosage: 9.83 MICROGRAM, 12MICROGRAM
     Dates: start: 20190913
  3. URSODIOL [Concomitant]
     Active Substance: URSODIOL
     Dosage: 1+0+2+0 250 MG
     Dates: start: 20200825
  4. MOVICOL [Concomitant]
     Active Substance: POLYETHYLENE GLYCOL 3350\POTASSIUM CHLORIDE\SODIUM BICARBONATE\SODIUM CHLORIDE
     Dosage: 1-2X1 47 MG, 13.125 G, 178 MG, 351 MG
     Dates: start: 20221006
  5. MELATONIN [Concomitant]
     Active Substance: MELATONIN
     Dosage: 2 MG
     Dates: start: 20230216
  6. FOLIC ACID [Concomitant]
     Active Substance: FOLIC ACID
     Dosage: 1 MG
     Dates: start: 20230525
  7. NIFEREX [Concomitant]
     Dosage: 100 MG, 567.66 MG
     Dates: start: 20230330
  8. CALCIUM\CHOLECALCIFEROL [Concomitant]
     Active Substance: CALCIUM\CHOLECALCIFEROL
     Dosage: 500 MG, 1250 MG, 10 MICROGRAM
     Dates: start: 20220615
  9. ZOLPIDEM [Concomitant]
     Active Substance: ZOLPIDEM TARTRATE
     Dosage: 0,5-2VB 5 MG, 4.02 MG
     Dates: start: 20220422
  10. DAPAGLIFLOZIN [Concomitant]
     Active Substance: DAPAGLIFLOZIN
     Dosage: 10 MG, 12.3 MG
     Dates: start: 20230329
  11. SPIRONOLACTONE [Concomitant]
     Active Substance: SPIRONOLACTONE
     Dosage: 25 MG
     Dates: start: 20230405, end: 20240221
  12. BISOPROLOL [Concomitant]
     Active Substance: BISOPROLOL\BISOPROLOL FUMARATE
     Dosage: 5 MG, 4.24 MG
     Dates: start: 20230405, end: 20240203
  13. ALENDRONAT [Concomitant]
     Active Substance: ALENDRONATE SODIUM
     Dosage: 70 MG, 81.2 MG
     Dates: start: 20230404, end: 20240213
  14. BETOLVEX [Concomitant]
     Dosage: 1 MG
     Dates: start: 20220414
  15. ELIQUIS [Concomitant]
     Active Substance: APIXABAN
     Dosage: 2.5 MG
     Dates: start: 20230223

REACTIONS (2)
  - Sinus node dysfunction [Recovered/Resolved with Sequelae]
  - Syncope [Recovered/Resolved with Sequelae]

NARRATIVE: CASE EVENT DATE: 20240201
